FAERS Safety Report 24303553 (Version 2)
Quarter: 2024Q3

REPORT INFORMATION
  Report Type: Spontaneous
  Country: GB (occurrence: GB)
  Receive Date: 20240910
  Receipt Date: 20240913
  Transmission Date: 20241016
  Serious: Yes (Hospitalization, Other)
  Sender: ANI
  Company Number: GB-ANIPHARMA-2024-UK-000183

PATIENT
  Age: 68 Year
  Sex: Male

DRUGS (6)
  1. CANDESARTAN CILEXETIL [Suspect]
     Active Substance: CANDESARTAN CILEXETIL
     Indication: Hypertension
     Dosage: 24 MG DAILY
  2. KELHALE [Concomitant]
     Dosage: UNK, TWO TIMES A DAY (2 PUFFS BD)
  3. ALBUTEROL [Concomitant]
     Active Substance: ALBUTEROL
     Dosage: UNK (2 PUFFS, 4 TO 6 TIMES A DAY)
  4. VITAMIN B12 [Concomitant]
     Active Substance: CYANOCOBALAMIN
     Dosage: UNK, FOUR TIMES/DAY
  5. CODEINE [Concomitant]
     Active Substance: CODEINE
     Dosage: UNK, FOUR TIMES/DAY
  6. ACETAMINOPHEN [Concomitant]
     Active Substance: ACETAMINOPHEN
     Dosage: UNK (8 TABLETS PER DAY)

REACTIONS (7)
  - Condition aggravated [Unknown]
  - Hospitalisation [Recovered/Resolved]
  - Product substitution issue [Recovered/Resolved]
  - Syncope [Recovered/Resolved]
  - Malaise [Recovered/Resolved]
  - Drug ineffective [Recovered/Resolved]
  - Head injury [Unknown]
